FAERS Safety Report 10142723 (Version 1)
Quarter: 2014Q2

REPORT INFORMATION
  Report Type: Spontaneous
  Country: JP (occurrence: None)
  Receive Date: 20140425
  Receipt Date: 20140425
  Transmission Date: 20141212
  Serious: Yes (Hospitalization)
  Sender: FDA-Public Use
  Company Number: SYM-2014-19983

PATIENT
  Age: 87 Year
  Sex: Female

DRUGS (4)
  1. TAMBOCOR [Suspect]
     Indication: ATRIAL FIBRILLATION
     Route: 048
  2. BAYASPIRIN (ACETYLSALICYLIC ACID) (ACETYLSALICYLIC ACID) [Suspect]
     Indication: PRODUCT USED FOR UNKNOWN INDICATION
     Route: 048
  3. RIZE [Suspect]
     Indication: PRODUCT USED FOR UNKNOWN INDICATION
     Route: 048
  4. MICOMBI [Suspect]
     Indication: PRODUCT USED FOR UNKNOWN INDICATION
     Route: 048

REACTIONS (13)
  - Hypoglycaemia [None]
  - Renal failure [None]
  - Urinary tract infection [None]
  - Insulinoma [None]
  - Electrocardiogram QRS complex shortened [None]
  - Tachycardia [None]
  - Insomnia [None]
  - Delirium [None]
  - Blood glucose increased [None]
  - Decreased appetite [None]
  - Altered state of consciousness [None]
  - Speech disorder [None]
  - Abnormal behaviour [None]
